FAERS Safety Report 9503656 (Version 1)
Quarter: 2013Q3

REPORT INFORMATION
  Report Type: Spontaneous
  Country: US (occurrence: None)
  Receive Date: 20130905
  Receipt Date: 20130905
  Transmission Date: 20140515
  Serious: No
  Sender: FDA-Public Use
  Company Number: None

PATIENT
  Age: 40 Year
  Sex: Female
  Weight: 93.44 kg

DRUGS (1)
  1. TOPAMAX [Suspect]
     Indication: MIGRAINE
     Route: 048
     Dates: start: 20130823, end: 20130901

REACTIONS (7)
  - Nephrolithiasis [None]
  - Confusional state [None]
  - Vision blurred [None]
  - Blood pressure increased [None]
  - Eye pain [None]
  - Myopia [None]
  - Photosensitivity reaction [None]
